FAERS Safety Report 7982669-8 (Version None)
Quarter: 2011Q4

REPORT INFORMATION
  Report Type: 
  Country: None (occurrence: None)
  Receive Date: 20111215
  Receipt Date: 20111208
  Transmission Date: 20120403
  Serious: Yes (Other)
  Sender: FDA-Public Use
  Company Number: US-ALEXION-A201101844

PATIENT
  Age: 24 Year
  Sex: Female

DRUGS (1)
  1. SOLIRIS [Suspect]
     Indication: PAROXYSMAL NOCTURNAL HAEMOGLOBINURIA
     Dosage: UNK, Q 12 DAYS
     Route: 042

REACTIONS (6)
  - RENAL FAILURE [None]
  - ARRHYTHMIA [None]
  - DRUG CLEARANCE INCREASED [None]
  - HAEMOLYSIS [None]
  - DRUG LEVEL BELOW THERAPEUTIC [None]
  - CARDIAC TAMPONADE [None]
